FAERS Safety Report 16598166 (Version 2)
Quarter: 2019Q3

REPORT INFORMATION
  Report Type: Report from Study
  Country: None (occurrence: PR)
  Receive Date: 20190719
  Receipt Date: 20190806
  Transmission Date: 20191004
  Serious: Yes (Hospitalization)
  Sender: FDA-Public Use
  Company Number: PR-ABBVIE-19K-131-2842797-00

PATIENT
  Age: 74 Year
  Sex: Female

DRUGS (2)
  1. VIDAZA [Concomitant]
     Active Substance: AZACITIDINE
     Indication: ACUTE MYELOID LEUKAEMIA
     Dosage: ALTERNATE WEEKS FOR 5 - 7 DAYS
  2. VENCLEXTA [Suspect]
     Active Substance: VENETOCLAX
     Indication: ACUTE MYELOID LEUKAEMIA
     Route: 048
     Dates: start: 20190322, end: 2019

REACTIONS (5)
  - Immunodeficiency [Not Recovered/Not Resolved]
  - Urinary retention [Unknown]
  - Haemoglobin decreased [Unknown]
  - Pyrexia [Unknown]
  - Dyschezia [Unknown]

NARRATIVE: CASE EVENT DATE: 201904
